FAERS Safety Report 18192677 (Version 1)
Quarter: 2020Q3

REPORT INFORMATION
  Report Type: Report from Study
  Country: US (occurrence: US)
  Receive Date: 20200825
  Receipt Date: 20200825
  Transmission Date: 20201103
  Serious: Yes (Death, Hospitalization)
  Sender: FDA-Public Use
  Company Number: US-MYLANLABS-2020M1074009

PATIENT
  Age: 13 Year

DRUGS (7)
  1. MITOXANTRONE [Suspect]
     Active Substance: MITOXANTRONE HYDROCHLORIDE
     Indication: ACUTE LYMPHOCYTIC LEUKAEMIA
     Dosage: 10 MILLIGRAM/SQ. METER AS A PART OF UK ALLR3 REINDUCTION REGIMEN; ON DAY 8 AND 9
     Route: 065
  2. VORINOSTAT [Suspect]
     Active Substance: VORINOSTAT
     Indication: ACUTE LYMPHOCYTIC LEUKAEMIA
     Dosage: 180 MILLIGRAM/SQ. METER MAXIMUM DOSE 400MG DAILY; ON DAY 2?7 AND DAY 16?21
     Route: 048
  3. METHOTREXATE. [Suspect]
     Active Substance: METHOTREXATE
     Indication: ACUTE LYMPHOCYTIC LEUKAEMIA
     Route: 037
  4. VINCRISTINE [Suspect]
     Active Substance: VINCRISTINE
     Indication: ACUTE LYMPHOCYTIC LEUKAEMIA
     Dosage: 1.5 MG/SQ. METER AS A PART OF UK ALLR3 REINDUCTION REGIMEN; MAXIMUM DOSE 2 MG ON DAY 10, 17, 24, 31
     Route: 065
  5. DECITABINE. [Suspect]
     Active Substance: DECITABINE
     Indication: ACUTE LYMPHOCYTIC LEUKAEMIA
     Dosage: 10 MILLIGRAM/SQ. METER ON DAY 1?5 AND DAY 15?19
     Route: 042
  6. DEXAMETHASONE. [Suspect]
     Active Substance: DEXAMETHASONE
     Indication: ACUTE LYMPHOCYTIC LEUKAEMIA
     Dosage: 20MG/M2 BIDMETER A PART OF UK ALLR3 REINDUCTION REGIMEN DOSE DIVIDED BID ON DAY 8?12, DAY 22?26
     Route: 065
  7. PEG/L?ASPARAGINASE [Suspect]
     Active Substance: PEGASPARGASE
     Indication: ACUTE LYMPHOCYTIC LEUKAEMIA
     Dosage: AS A PART OF UK ALLR3 REINDUCTION REGIMEN ; 2,500 IU/M2/DOSE ON DAY 10 AND 24
     Route: 065

REACTIONS (4)
  - Staphylococcal infection [Unknown]
  - Infection [Fatal]
  - Device related infection [Unknown]
  - Pneumonia [Unknown]
